FAERS Safety Report 23140212 (Version 3)
Quarter: 2023Q4

REPORT INFORMATION
  Report Type: Report from Study
  Country: US (occurrence: US)
  Receive Date: 20231102
  Receipt Date: 20231221
  Transmission Date: 20240110
  Serious: Yes (Other)
  Sender: FDA-Public Use
  Company Number: US-JAZZ-2023-US-001610

PATIENT
  Age: 44 Year
  Sex: Female

DRUGS (21)
  1. XYREM [Suspect]
     Active Substance: SODIUM OXYBATE
     Indication: Narcolepsy
     Dosage: 4.5 GRAM, TWICE NIGHTLY
     Route: 048
  2. XYREM [Suspect]
     Active Substance: SODIUM OXYBATE
     Indication: Cataplexy
     Dosage: UNK
     Dates: start: 20221202, end: 20230501
  3. XYREM [Suspect]
     Active Substance: SODIUM OXYBATE
     Indication: Somnolence
     Dosage: UNK
  4. NAPROXEN [Suspect]
     Active Substance: NAPROXEN
     Indication: Product used for unknown indication
     Dosage: UNK
  5. CORGARD [Concomitant]
     Active Substance: NADOLOL
     Indication: Product used for unknown indication
     Dosage: UNK
     Dates: start: 20001030
  6. LEVOTHYROXINE [Concomitant]
     Active Substance: LEVOTHYROXINE
     Indication: Product used for unknown indication
     Dosage: UNK
     Dates: start: 20051030
  7. PROBIOTIC BLEND [Concomitant]
     Indication: Product used for unknown indication
     Dosage: UNK
     Dates: start: 20230201
  8. VITAMINS [Concomitant]
     Active Substance: VITAMINS
     Indication: Product used for unknown indication
     Dosage: UNK
     Dates: start: 20221030
  9. ASPIRIN [Concomitant]
     Active Substance: ASPIRIN
  10. ERGOCALCIFEROL [Concomitant]
     Active Substance: ERGOCALCIFEROL
  11. FUROSEMIDE [Concomitant]
     Active Substance: FUROSEMIDE
     Dosage: UNK
     Dates: start: 20170827
  12. IRON BISGLYCINATE [Concomitant]
  13. LIDODERM [Concomitant]
     Active Substance: LIDOCAINE
  14. MAGNESIUM OXIDE [Concomitant]
     Active Substance: MAGNESIUM OXIDE
  15. MEDROXYPROGESTERONE [Concomitant]
     Active Substance: MEDROXYPROGESTERONE
  16. METHOCARBAMOL [Concomitant]
     Active Substance: METHOCARBAMOL
  17. RITALIN LA [Concomitant]
     Active Substance: METHYLPHENIDATE HYDROCHLORIDE
  18. MONTELUKAST [Concomitant]
     Active Substance: MONTELUKAST SODIUM
  19. PROMETRIUM [Concomitant]
     Active Substance: PROGESTERONE
  20. VITAMIN C [Concomitant]
     Active Substance: ASCORBIC ACID
     Indication: Product used for unknown indication
  21. VITAMIN B COMPLEX/B12 [VITAMIN B COMPLEX] [Concomitant]
     Indication: Product used for unknown indication
     Dosage: 800 MICROGRAM

REACTIONS (4)
  - Musculoskeletal discomfort [Unknown]
  - Fibromyalgia [Unknown]
  - Oral herpes [Unknown]
  - Palpitations [Unknown]

NARRATIVE: CASE EVENT DATE: 20230101
